FAERS Safety Report 6367726-4 (Version None)
Quarter: 2009Q3

REPORT INFORMATION
  Report Type: 
  Country: None (occurrence: None)
  Receive Date: 20090921
  Receipt Date: 20090911
  Transmission Date: 20100115
  Serious: Yes (Other)
  Sender: FDA-Public Use
  Company Number: PHHY2009BR25437

PATIENT
  Sex: Female

DRUGS (3)
  1. DIOVAN [Suspect]
     Indication: HYPERTENSION
     Dosage: 1 TABLET (80 MG/DAY)
     Route: 048
     Dates: end: 20090701
  2. DIOVAN [Suspect]
     Dosage: 1 TABLET (160 MG/DAY)
     Route: 048
     Dates: start: 20090701
  3. VERAPAMIL HYDROCHLORIDE [Concomitant]
     Indication: HYPERTENSION
     Dosage: 2 DF, QD
     Route: 048

REACTIONS (1)
  - BLOOD PRESSURE INCREASED [None]
